FAERS Safety Report 11539838 (Version 1)
Quarter: 2015Q3

REPORT INFORMATION
  Report Type: Spontaneous
  Country: US (occurrence: None)
  Receive Date: 20150922
  Receipt Date: 20150922
  Transmission Date: 20151125
  Serious: Yes (Hospitalization)
  Sender: FDA-Public Use
  Company Number: None

PATIENT
  Age: 73 Year
  Sex: Male
  Weight: 99.5 kg

DRUGS (3)
  1. SULFAMETHAXAZOLE/TMP [Concomitant]
  2. LENALIDOMIDE 25MG CELGENE [Suspect]
     Active Substance: LENALIDOMIDE
     Indication: PLASMA CELL MYELOMA
     Route: 048
     Dates: start: 20150824, end: 20150904
  3. ALLOPURINOL. [Concomitant]
     Active Substance: ALLOPURINOL

REACTIONS (6)
  - Rash pruritic [None]
  - Toxic epidermal necrolysis [None]
  - Rash [None]
  - Skin exfoliation [None]
  - Stevens-Johnson syndrome [None]
  - Rash macular [None]

NARRATIVE: CASE EVENT DATE: 20150908
